FAERS Safety Report 8463408-3 (Version None)
Quarter: 2012Q2

REPORT INFORMATION
  Report Type: 
  Country: None (occurrence: None)
  Receive Date: 20120625
  Receipt Date: 20120621
  Transmission Date: 20120825
  Serious: No
  Sender: FDA-Public Use
  Company Number: US-BAYER-2012-061956

PATIENT
  Age: 32 Year
  Sex: Female
  Weight: 81.633 kg

DRUGS (1)
  1. ALEVE (CAPLET) [Suspect]
     Indication: HEADACHE
     Dosage: 2 DF, PRN
     Route: 048
     Dates: start: 20040101, end: 20120620

REACTIONS (3)
  - DYSPEPSIA [None]
  - THERMAL BURN [None]
  - BURN OF INTERNAL ORGANS [None]
